FAERS Safety Report 4756896-7 (Version None)
Quarter: 2005Q3

REPORT INFORMATION
  Report Type: 
  Country: None (occurrence: None)
  Receive Date: 20050830
  Receipt Date: 20050713
  Transmission Date: 20060218
  Serious: No
  Sender: FDA-Public Use
  Company Number: US-GLAXOSMITHKLINE-A0566105A

PATIENT
  Age: 75 Year
  Sex: Male

DRUGS (13)
  1. AVODART [Suspect]
     Indication: BENIGN PROSTATIC HYPERPLASIA
     Dosage: .5MG PER DAY
     Route: 048
  2. FLOMAX [Concomitant]
  3. COUMADIN [Concomitant]
  4. ALLOPURINOL [Concomitant]
  5. DYNACIRC [Concomitant]
  6. LASIX [Concomitant]
  7. K-DUR 10 [Concomitant]
  8. LANOXIN [Concomitant]
  9. AVAPRO [Concomitant]
  10. CAPTOPRIL [Concomitant]
  11. SEREVENT [Concomitant]
  12. PREDNISONE TAB [Concomitant]
  13. TYLENOL [Concomitant]

REACTIONS (2)
  - INTERNATIONAL NORMALISED RATIO INCREASED [None]
  - PROTHROMBIN TIME PROLONGED [None]
